FAERS Safety Report 14767632 (Version 3)
Quarter: 2023Q1

REPORT INFORMATION
  Report Type: Spontaneous
  Country: US (occurrence: None)
  Receive Date: 20180417
  Receipt Date: 20230317
  Transmission Date: 20230417
  Serious: Yes (Hospitalization, Other)
  Sender: FDA-Public Use
  Company Number: 2018SE46556

PATIENT
  Age: 466 Month
  Sex: Male
  Weight: 99.8 kg

DRUGS (29)
  1. NEXIUM [Suspect]
     Active Substance: ESOMEPRAZOLE MAGNESIUM
     Indication: Flatulence
     Route: 048
     Dates: start: 2008, end: 2017
  2. NEXIUM [Suspect]
     Active Substance: ESOMEPRAZOLE MAGNESIUM
     Indication: Cardiac disorder
     Route: 048
     Dates: start: 2008, end: 2017
  3. NEXIUM [Suspect]
     Active Substance: ESOMEPRAZOLE MAGNESIUM
     Indication: Flatulence
     Dosage: 40.0MG UNKNOWN
     Route: 048
     Dates: start: 2002, end: 2012
  4. NEXIUM [Suspect]
     Active Substance: ESOMEPRAZOLE MAGNESIUM
     Indication: Cardiac disorder
     Dosage: 40.0MG UNKNOWN
     Route: 048
     Dates: start: 2002, end: 2012
  5. NEXIUM 24HR [Suspect]
     Active Substance: ESOMEPRAZOLE MAGNESIUM
     Route: 048
     Dates: start: 2008, end: 2017
  6. PRILOSEC [Suspect]
     Active Substance: OMEPRAZOLE MAGNESIUM
     Indication: Cardiac disorder
     Route: 048
     Dates: start: 2012, end: 2018
  7. PRILOSEC [Suspect]
     Active Substance: OMEPRAZOLE MAGNESIUM
     Indication: Flatulence
     Route: 048
     Dates: start: 2012, end: 2018
  8. PROTONIX [Suspect]
     Active Substance: PANTOPRAZOLE SODIUM
     Indication: Cardiac disorder
     Route: 065
     Dates: start: 2008, end: 2017
  9. PROTONIX [Suspect]
     Active Substance: PANTOPRAZOLE SODIUM
     Indication: Flatulence
     Route: 065
     Dates: start: 2008, end: 2017
  10. PROTONIX [Suspect]
     Active Substance: PANTOPRAZOLE SODIUM
     Indication: Cardiac disorder
     Dosage: 40.0MG UNKNOWN
     Dates: start: 20170121, end: 20171025
  11. PROTONIX [Suspect]
     Active Substance: PANTOPRAZOLE SODIUM
     Indication: Flatulence
     Dosage: 40.0MG UNKNOWN
     Dates: start: 20170121, end: 20171025
  12. RANITIDINE [Suspect]
     Active Substance: RANITIDINE
  13. ZANTAC [Suspect]
     Active Substance: RANITIDINE HYDROCHLORIDE
     Indication: Gastrooesophageal reflux disease
     Route: 065
  14. ZANTAC [Suspect]
     Active Substance: RANITIDINE HYDROCHLORIDE
     Indication: Gastrooesophageal reflux disease
     Route: 065
     Dates: start: 2009
  15. FUROSEMIDE [Concomitant]
     Active Substance: FUROSEMIDE
     Indication: Urine analysis abnormal
     Route: 065
     Dates: start: 2009
  16. CEFUROXIME [Concomitant]
     Active Substance: CEFUROXIME
     Route: 065
  17. ALPRAZOLAM [Concomitant]
     Active Substance: ALPRAZOLAM
     Route: 065
  18. SERTRALINE [Concomitant]
     Active Substance: SERTRALINE HYDROCHLORIDE
     Indication: Depression
     Route: 065
     Dates: start: 2009
  19. LISINOPRIL [Concomitant]
     Active Substance: LISINOPRIL
     Route: 065
  20. METOLAZONE [Concomitant]
     Active Substance: METOLAZONE
     Route: 065
  21. VANCOMYCIN [Concomitant]
     Active Substance: VANCOMYCIN
     Route: 065
  22. FAMOTIDINE [Concomitant]
     Active Substance: FAMOTIDINE
     Route: 065
  23. VIGAMOX [Concomitant]
     Active Substance: MOXIFLOXACIN HYDROCHLORIDE
     Route: 065
  24. POTASSIUM CHLORIDE [Concomitant]
     Active Substance: POTASSIUM CHLORIDE
     Route: 065
  25. HYDROCODONE [Concomitant]
     Active Substance: HYDROCODONE
     Indication: Pain
     Route: 065
  26. TUMS [Concomitant]
     Active Substance: CALCIUM CARBONATE
     Dosage: 15MG
     Route: 065
  27. ROLAIDS OTC [Concomitant]
     Dosage: 550 MG
  28. XANAX [Concomitant]
     Active Substance: ALPRAZOLAM
     Indication: Anxiety
     Route: 065
     Dates: start: 2009
  29. ZOLOFT [Concomitant]
     Active Substance: SERTRALINE HYDROCHLORIDE
     Indication: Anxiety
     Route: 065

REACTIONS (4)
  - Renal failure [Not Recovered/Not Resolved]
  - Chronic kidney disease [Unknown]
  - Cardiac failure [Not Recovered/Not Resolved]
  - Cardiac murmur [Not Recovered/Not Resolved]

NARRATIVE: CASE EVENT DATE: 20060101
